FAERS Safety Report 10818951 (Version 1)
Quarter: 2015Q1

REPORT INFORMATION
  Report Type: Spontaneous
  Country: US (occurrence: US)
  Receive Date: 20150218
  Receipt Date: 20150218
  Transmission Date: 20150721
  Serious: No
  Sender: FDA-Public Use
  Company Number: US-ABBVIE-14K-163-1292824-00

PATIENT
  Sex: Female
  Weight: 44.49 kg

DRUGS (3)
  1. HUMIRA [Suspect]
     Active Substance: ADALIMUMAB
     Indication: CROHN^S DISEASE
     Route: 065
     Dates: start: 20140603, end: 20140603
  2. HUMIRA [Suspect]
     Active Substance: ADALIMUMAB
     Route: 065
     Dates: start: 20140617, end: 20140617
  3. HUMIRA [Suspect]
     Active Substance: ADALIMUMAB
     Route: 065
     Dates: start: 201407

REACTIONS (4)
  - Liquid product physical issue [Unknown]
  - Wrong technique in drug usage process [Unknown]
  - Drug administered at inappropriate site [Unknown]
  - Device issue [Unknown]

NARRATIVE: CASE EVENT DATE: 2014
